FAERS Safety Report 25152694 (Version 1)
Quarter: 2025Q2

REPORT INFORMATION
  Report Type: Spontaneous
  Country: US (occurrence: US)
  Receive Date: 20250403
  Receipt Date: 20250403
  Transmission Date: 20250717
  Serious: Yes (Death, Other)
  Sender: BRISTOL MYERS SQUIBB
  Company Number: US-BRISTOL-MYERS SQUIBB COMPANY-2025-049157

PATIENT
  Age: 67 Year
  Sex: Male

DRUGS (1)
  1. LENALIDOMIDE [Suspect]
     Active Substance: LENALIDOMIDE
     Indication: Nicotine dependence
     Dosage: TAKE 1 CAPSULE BY MOUTH ONCE DAILY FOR 3 WEEKS ON AND 1 WEEK OFF
     Route: 048

REACTIONS (2)
  - Death [Fatal]
  - Off label use [Unknown]
